FAERS Safety Report 4893912-6 (Version None)
Quarter: 2006Q1

REPORT INFORMATION
  Report Type: 
  Country: None (occurrence: None)
  Receive Date: 20060127
  Receipt Date: 20050203
  Transmission Date: 20060701
  Serious: No
  Sender: FDA-Public Use
  Company Number: US-GLAXOSMITHKLINE-A0543737A

PATIENT
  Age: 55 Year

DRUGS (2)
  1. WELLBUTRIN [Suspect]
     Indication: DEPRESSION
  2. UNIRETIC [Concomitant]

REACTIONS (1)
  - BLOOD PRESSURE INCREASED [None]
